FAERS Safety Report 7180003-7 (Version None)
Quarter: 2010Q4

REPORT INFORMATION
  Report Type: 
  Country: None (occurrence: None)
  Receive Date: 20101123
  Receipt Date: 20100805
  Transmission Date: 20110411
  Serious: No
  Sender: FDA-Public Use
  Company Number: 016779

PATIENT
  Sex: Female
  Weight: 91 kg

DRUGS (1)
  1. CIMZIA [Suspect]
     Indication: CROHN'S DISEASE
     Dosage: (400 MG, INITIAL DOSE SUBCUTANEOUS)
     Route: 058
     Dates: start: 20100804

REACTIONS (3)
  - DYSPEPSIA [None]
  - INJECTION SITE REACTION [None]
  - PAIN IN EXTREMITY [None]
